FAERS Safety Report 12313791 (Version 2)
Quarter: 2016Q2

REPORT INFORMATION
  Report Type: Spontaneous
  Country: CN (occurrence: CN)
  Receive Date: 20160428
  Receipt Date: 20160525
  Transmission Date: 20160815
  Serious: Yes (Hospitalization)
  Sender: FDA-Public Use
  Company Number: CN-009507513-1604CHN015216

PATIENT
  Age: 74 Year
  Sex: Male

DRUGS (2)
  1. BIAPENEM [Concomitant]
     Active Substance: BIAPENEM
     Indication: INFECTION
     Dosage: 0.3 G, BID
     Route: 041
     Dates: start: 20150930, end: 20151008
  2. TIENAM [Suspect]
     Active Substance: CILASTATIN SODIUM\IMIPENEM
     Indication: LUNG INFECTION
     Dosage: 0.5 G, Q6H (ALSO REPORTED AS QD)
     Route: 041
     Dates: start: 20150924, end: 20150930

REACTIONS (2)
  - Rash [Recovering/Resolving]
  - Mania [Recovering/Resolving]

NARRATIVE: CASE EVENT DATE: 20150930
